FAERS Safety Report 18555282 (Version 3)
Quarter: 2021Q1

REPORT INFORMATION
  Report Type: Report from Study
  Country: KR (occurrence: KR)
  Receive Date: 20201127
  Receipt Date: 20210118
  Transmission Date: 20210419
  Serious: Yes (Life-Threatening, Hospitalization, Other)
  Sender: FDA-Public Use
  Company Number: KR-BRISTOL-MYERS SQUIBB COMPANY-BMS-2020-093209

PATIENT
  Age: 46 Year
  Sex: Male
  Weight: 53.32 kg

DRUGS (12)
  1. LASIX [Concomitant]
     Active Substance: FUROSEMIDE
     Dosage: 20 MG A DAY
     Route: 042
     Dates: start: 20201106, end: 20201108
  2. LASIX [Concomitant]
     Active Substance: FUROSEMIDE
     Dosage: 20 MG A DAY
     Route: 042
     Dates: start: 20201114, end: 20201114
  3. REGORAFENIB. [Suspect]
     Active Substance: REGORAFENIB
     Indication: HEPATOCELLULAR CARCINOMA
     Dosage: 80 MILLIGRAM, Q3WK
     Route: 048
     Dates: start: 20201008, end: 20201028
  4. SUPRAX [CEFOTAXIME SODIUM] [Concomitant]
     Indication: PRODUCT USED FOR UNKNOWN INDICATION
     Dosage: 200 MILLIGRAM
     Route: 048
     Dates: start: 20201026, end: 20201102
  5. TENOFOBELL [Concomitant]
     Indication: ANTIVIRAL TREATMENT
     Dosage: 300 MILLIGRAM
     Route: 048
     Dates: start: 20200203
  6. LASIX [Concomitant]
     Active Substance: FUROSEMIDE
     Indication: POLYURIA
     Dosage: 10 MG A DAY
     Route: 042
     Dates: start: 20201104, end: 20201104
  7. NIVOLUMAB [Suspect]
     Active Substance: NIVOLUMAB
     Indication: HEPATOCELLULAR CARCINOMA
     Dosage: 480 MILLIGRAM, Q4WK
     Route: 042
     Dates: start: 20201008, end: 20201008
  8. SODIUM BICARBONATE. [Concomitant]
     Active Substance: SODIUM BICARBONATE
     Indication: ELECTROLYTE SUBSTITUTION THERAPY
     Dosage: 3.36 G A DAY
     Route: 042
     Dates: start: 20201105, end: 20201110
  9. NOREPIRIN [Concomitant]
     Indication: CARDIAC DISORDER
     Dosage: 12MG A DAY
     Route: 042
     Dates: start: 20201104, end: 20201108
  10. LASIX [Concomitant]
     Active Substance: FUROSEMIDE
     Dosage: 60 MG A DAY
     Route: 042
     Dates: start: 20201109, end: 20201109
  11. LASIX [Concomitant]
     Active Substance: FUROSEMIDE
     Dosage: 40 MG A DAY
     Route: 042
     Dates: start: 20201112, end: 20201113
  12. NORPIN [NOREPINEPHRINE] [Concomitant]
     Indication: CARDIAC DISORDER
     Dosage: 20MG A DAY
     Route: 042
     Dates: start: 20201104, end: 20201108

REACTIONS (2)
  - Acute kidney injury [Recovering/Resolving]
  - Pyrexia [Recovered/Resolved]

NARRATIVE: CASE EVENT DATE: 20201030
